FAERS Safety Report 13532511 (Version 1)
Quarter: 2017Q2

REPORT INFORMATION
  Report Type: Report from Study
  Country: JP (occurrence: JP)
  Receive Date: 20170510
  Receipt Date: 20170510
  Transmission Date: 20170830
  Serious: Yes (Hospitalization)
  Sender: FDA-Public Use
  Company Number: JP-EMD SERONO-E2B_80058669

PATIENT
  Age: 31 Year
  Sex: Female
  Weight: 36 kg

DRUGS (7)
  1. PF-06463922 [Suspect]
     Active Substance: LORLATINIB
     Indication: NON-SMALL CELL LUNG CANCER
     Dosage: 100 MG, 1X/DAY
     Route: 048
     Dates: start: 20161228, end: 20170118
  2. METOCLOPRAMIDE. [Concomitant]
     Active Substance: METOCLOPRAMIDE
     Indication: NAUSEA
     Dosage: 10 MG, AS NEEDED
     Route: 048
     Dates: start: 20170104
  3. FERROUS SODIUM CITRATE [Concomitant]
     Active Substance: SODIUM FERROUS CITRATE
     Indication: ANAEMIA
     Dosage: 100 MG, 2X/DAY
     Route: 048
     Dates: start: 20170110
  4. BROTIZOLAM [Concomitant]
     Active Substance: BROTIZOLAM
     Indication: INSOMNIA
     Dosage: 0.25 MG, AS NEEDED
     Route: 048
     Dates: start: 201611
  5. LOXOPROFEN [Concomitant]
     Active Substance: LOXOPROFEN
     Indication: TUMOUR ASSOCIATED FEVER
     Dosage: 60 MG, AS NEEDED
     Route: 048
     Dates: start: 20161222
  6. AVELUMAB [Suspect]
     Active Substance: AVELUMAB
     Indication: NON-SMALL CELL LUNG CANCER
     Dosage: 355 MG/BODY (10MG/KG),ONCE EVERY 2 WEEKS
     Route: 041
     Dates: start: 20161228, end: 20170111
  7. LAC-B GRANULAR POWDER N [Concomitant]
     Indication: DIARRHOEA
     Dosage: 1 G, AS NEEDED
     Route: 048
     Dates: start: 20170104

REACTIONS (1)
  - Pericardial effusion [Recovered/Resolved]

NARRATIVE: CASE EVENT DATE: 20170118
